FAERS Safety Report 25023568 (Version 1)
Quarter: 2025Q1

REPORT INFORMATION
  Report Type: Spontaneous
  Country: GB (occurrence: GB)
  Receive Date: 20250228
  Receipt Date: 20250228
  Transmission Date: 20250409
  Serious: Yes (Other)
  Sender: B BRAUN
  Company Number: GB-B.Braun Medical Inc.-2171945

PATIENT
  Age: 23 Year
  Sex: Female

DRUGS (1)
  1. METRONIDAZOLE [Suspect]
     Active Substance: METRONIDAZOLE
     Indication: Infection

REACTIONS (1)
  - Musculoskeletal stiffness [Not Recovered/Not Resolved]
